FAERS Safety Report 19301158 (Version 1)
Quarter: 2021Q2

REPORT INFORMATION
  Report Type: Spontaneous
  Country: US (occurrence: US)
  Receive Date: 20210524
  Receipt Date: 20210524
  Transmission Date: 20210717
  Serious: No
  Sender: FDA-Public Use
  Company Number: US-009507513-2105USA004347

PATIENT
  Age: 64 Year
  Sex: Male

DRUGS (5)
  1. INTRON A [Suspect]
     Active Substance: INTERFERON ALFA-2B
     Indication: CUTANEOUS T-CELL LYMPHOMA STAGE I
     Dosage: 0.5 MILLION INTERNATIONAL UNIT, TIW
     Route: 003
  2. CLOBETASOL [Concomitant]
     Active Substance: CLOBETASOL
  3. BEXAROTENE. [Concomitant]
     Active Substance: BEXAROTENE
     Indication: CUTANEOUS T-CELL LYMPHOMA STAGE I
     Route: 048
  4. INTRON A [Suspect]
     Active Substance: INTERFERON ALFA-2B
     Dosage: 1 MILLION INTERNATIONAL UNIT,  THREE TIMES A WEEK
     Route: 003
  5. IMIQUIMOD. [Concomitant]
     Active Substance: IMIQUIMOD
     Indication: CUTANEOUS T-CELL LYMPHOMA STAGE I
     Route: 061

REACTIONS (2)
  - Incorrect dose administered [Unknown]
  - Product use issue [Unknown]
